FAERS Safety Report 8992707 (Version 1)
Quarter: 2013Q1

REPORT INFORMATION
  Report Type: Report from Study
  Country: RU (occurrence: RU)
  Receive Date: 20130101
  Receipt Date: 20130101
  Transmission Date: 20140127
  Serious: Yes (Other)
  Sender: FDA-Public Use
  Company Number: RU-ROCHE-1175008

PATIENT
  Age: 52 Year
  Sex: Male
  Weight: 70 kg

DRUGS (5)
  1. BEVACIZUMAB [Suspect]
     Indication: RECTOSIGMOID CANCER
     Route: 042
     Dates: start: 20120207
  2. OXALIPLATIN [Concomitant]
     Indication: RECTOSIGMOID CANCER
     Route: 065
     Dates: start: 20120207, end: 20120423
  3. 5-FLUOROURACIL [Concomitant]
     Indication: RECTOSIGMOID CANCER
     Route: 065
     Dates: start: 20120207
  4. LEUCOVORIN [Concomitant]
     Indication: RECTOSIGMOID CANCER
     Route: 042
     Dates: start: 20120207
  5. IRINOTECAN [Concomitant]
     Indication: RECTOSIGMOID CANCER
     Route: 042
     Dates: start: 20120423

REACTIONS (1)
  - Disease progression [Recovering/Resolving]
